FAERS Safety Report 5107604-1 (Version None)
Quarter: 2006Q3

REPORT INFORMATION
  Report Type: 
  Country: None (occurrence: None)
  Receive Date: 20060913
  Receipt Date: 20060913
  Transmission Date: 20061208
  Serious: Yes (Hospitalization)
  Sender: FDA-Public Use
  Company Number: None

PATIENT
  Sex: Female
  Weight: 54.55 kg

DRUGS (2)
  1. CARBOPLATIN [Suspect]
     Dosage: SEE IMAGE
     Dates: end: 20060727
  2. TAXOL [Suspect]
     Dosage: SEE IMAGE
     Dates: end: 20060727

REACTIONS (3)
  - DEHYDRATION [None]
  - GASTROINTESTINAL FISTULA [None]
  - POST PROCEDURAL COMPLICATION [None]
